FAERS Safety Report 7258473-5 (Version None)
Quarter: 2011Q1

REPORT INFORMATION
  Report Type: 
  Country: None (occurrence: None)
  Receive Date: 20110129
  Receipt Date: 20100820
  Transmission Date: 20110831
  Serious: No
  Sender: FDA-Public Use
  Company Number: US-ABBOTT-10P-163-0665394-00

PATIENT
  Age: 51 Year
  Sex: Female

DRUGS (3)
  1. CALCIUM [Concomitant]
     Indication: PRODUCT USED FOR UNKNOWN INDICATION
  2. HUMIRA [Suspect]
     Indication: RHEUMATOID ARTHRITIS
     Dates: start: 20090101, end: 20100101
  3. ONE-A-DAY [Concomitant]
     Indication: VITAMIN SUPPLEMENTATION
     Dosage: DAILY

REACTIONS (4)
  - CHEST PAIN [None]
  - FATIGUE [None]
  - MUSCLE SPASMS [None]
  - CHEST DISCOMFORT [None]
